FAERS Safety Report 4637632-1 (Version None)
Quarter: 2005Q2

REPORT INFORMATION
  Report Type: 
  Country: None (occurrence: None)
  Receive Date: 20050418
  Receipt Date: 20050408
  Transmission Date: 20051028
  Serious: Yes (Hospitalization, Disabling)
  Sender: FDA-Public Use
  Company Number: US-GLAXOSMITHKLINE-A0553412A

PATIENT
  Age: 21 Year
  Sex: Female

DRUGS (2)
  1. LAMICTAL [Suspect]
     Route: 048
     Dates: start: 20050119, end: 20050325
  2. PRENATAL VITAMINS [Concomitant]

REACTIONS (8)
  - CERVICITIS [None]
  - DRUG EXPOSURE DURING PREGNANCY [None]
  - OEDEMA MOUTH [None]
  - PHARYNGEAL OEDEMA [None]
  - RASH [None]
  - RASH VESICULAR [None]
  - SWELLING FACE [None]
  - VAGINAL INFECTION [None]
